FAERS Safety Report 4785293-3 (Version None)
Quarter: 2005Q3

REPORT INFORMATION
  Report Type: 
  Country: None (occurrence: None)
  Receive Date: 20050929
  Receipt Date: 20050921
  Transmission Date: 20060218
  Serious: Yes (Life-Threatening, Hospitalization)
  Sender: FDA-Public Use
  Company Number: EM2005-0457

PATIENT
  Age: 55 Year
  Sex: Male
  Weight: 60 kg

DRUGS (19)
  1. MACROLIN; CHIRON CORPORATION (ALDESLEUKIN)INJECTION [Suspect]
     Indication: HIV INFECTION
     Dosage: 4.5 MIU, TWICE, SUBCUTAN.
     Route: 058
     Dates: start: 20050329, end: 20050402
  2. MACROLIN; CHIRON CORPORATION (ALDESLEUKIN)INJECTION [Suspect]
     Dates: start: 20050502, end: 20050506
  3. MACROLIN; CHIRON CORPORATION (ALDESLEUKIN)INJECTION [Suspect]
     Dates: start: 20050613, end: 20050617
  4. MACROLIN; CHIRON CORPORATION (ALDESLEUKIN)INJECTION [Suspect]
     Dates: start: 20050726, end: 20050730
  5. IMOVANE (ZOPICLONE) [Concomitant]
  6. PAROXETINE HYDROCHLORIDE [Concomitant]
  7. NORVIR [Concomitant]
  8. FUZEON [Concomitant]
  9. TELZIR [Concomitant]
  10. OMEPRAZOLE [Concomitant]
  11. ANSATIPIN (RIFABUTIN) [Concomitant]
  12. ZITHROMAX [Concomitant]
  13. ROVALCYTE [Concomitant]
  14. BACTRIM [Concomitant]
  15. SMECTA (GLUCOSE MONOHYDRATE, SACCHARIN SODIUM, VANILLIN) [Concomitant]
  16. NEURONTIN [Concomitant]
  17. SPECIAFOLDINE (FOLIC ACID) [Concomitant]
  18. VOLUVEN [Concomitant]
  19. FLUDROCORTISONE ACETATE [Concomitant]

REACTIONS (17)
  - ACUTE RESPIRATORY FAILURE [None]
  - AORTIC VALVE DISEASE [None]
  - ASTHENIA [None]
  - COR PULMONALE ACUTE [None]
  - DIARRHOEA [None]
  - DRUG INEFFECTIVE [None]
  - DYSPNOEA [None]
  - HYPOTENSION [None]
  - HYPOXIA [None]
  - INFLAMMATION [None]
  - INTERSTITIAL LUNG DISEASE [None]
  - MITRAL VALVE DISEASE [None]
  - PERICARDIAL EFFUSION [None]
  - PULMONARY ARTERIAL PRESSURE INCREASED [None]
  - PYREXIA [None]
  - RESPIRATORY ALKALOSIS [None]
  - STAPHYLOCOCCAL INFECTION [None]
